FAERS Safety Report 9346469 (Version 1)
Quarter: 2013Q2

REPORT INFORMATION
  Report Type: Spontaneous
  Country: US (occurrence: US)
  Receive Date: 20130613
  Receipt Date: 20130613
  Transmission Date: 20140414
  Serious: Yes (Other)
  Sender: FDA-Public Use
  Company Number: US-BAYER-2013-069892

PATIENT
  Age: 30 Year
  Sex: Female
  Weight: 58.05 kg

DRUGS (2)
  1. MIRENA [Suspect]
     Indication: CONTRACEPTION
     Dosage: 20 MCG/24HR, CONT
     Route: 015
     Dates: start: 20110425, end: 20130521
  2. MIRENA [Suspect]
     Indication: MENSTRUAL CYCLE MANAGEMENT

REACTIONS (8)
  - Device dislocation [None]
  - Medical device complication [None]
  - Device issue [None]
  - Medical device discomfort [None]
  - Procedural pain [None]
  - Device use error [None]
  - Device difficult to use [None]
  - Medical device entrapment [None]
